FAERS Safety Report 7512127-6 (Version None)
Quarter: 2011Q2

REPORT INFORMATION
  Report Type: 
  Country: None (occurrence: None)
  Receive Date: 20110531
  Receipt Date: 20110517
  Transmission Date: 20111010
  Serious: Yes (Other)
  Sender: FDA-Public Use
  Company Number: JP-ASTRAZENECA-2011SE32238

PATIENT
  Age: 78 Year
  Sex: Male

DRUGS (7)
  1. MEROPENEM [Suspect]
     Route: 042
     Dates: start: 20110515, end: 20110516
  2. MEROPENEM [Suspect]
     Route: 042
     Dates: start: 20110515, end: 20110516
  3. CEFMETAZON [Concomitant]
  4. CALTAN [Concomitant]
  5. THYRADIN [Concomitant]
  6. BIOFERMIN [Concomitant]
  7. NI [Concomitant]

REACTIONS (1)
  - HEPATIC FUNCTION ABNORMAL [None]
